FAERS Safety Report 26062760 (Version 2)
Quarter: 2025Q4

REPORT INFORMATION
  Report Type: Report from Study
  Country: EU (occurrence: EU)
  Receive Date: 20251119
  Receipt Date: 20251125
  Transmission Date: 20260118
  Serious: Yes (Other)
  Sender: ABBVIE
  Company Number: EU-ABBVIE-6549598

PATIENT
  Age: 47 Year
  Sex: Female
  Weight: 82.6 kg

DRUGS (2)
  1. MIRVETUXIMAB SORAVTANSINE [Suspect]
     Active Substance: MIRVETUXIMAB SORAVTANSINE
     Indication: Product used for unknown indication
     Dosage: 132 MINUTES; 100 MG/20 ML
     Route: 042
     Dates: start: 20250912
  2. INSULIN NOS [Concomitant]
     Active Substance: INSULIN NOS
     Indication: Type 2 diabetes mellitus
     Route: 058

REACTIONS (3)
  - Ocular toxicity [Recovering/Resolving]
  - Visual acuity reduced [Recovering/Resolving]
  - Keratitis [Recovering/Resolving]

NARRATIVE: CASE EVENT DATE: 20251113
